FAERS Safety Report 22131403 (Version 1)
Quarter: 2023Q1

REPORT INFORMATION
  Report Type: Report from Study
  Country: EG (occurrence: EG)
  Receive Date: 20230323
  Receipt Date: 20230323
  Transmission Date: 20230418
  Serious: Yes (Other)
  Sender: FDA-Public Use
  Company Number: EG-002147023-NVSC2023EG062805

PATIENT
  Age: 54 Year
  Sex: Female

DRUGS (4)
  1. KISQALI [Suspect]
     Active Substance: RIBOCICLIB
     Indication: Breast cancer metastatic
     Dosage: UNK, TID (3 TABLETS ONCE PER DAY FOR 21 DAYS AND 1 WEEK OFF)
     Route: 048
     Dates: start: 202212
  2. KISQALI [Suspect]
     Active Substance: RIBOCICLIB
     Indication: Bone cancer metastatic
  3. ZOMETA [Suspect]
     Active Substance: ZOLEDRONIC ACID
     Indication: Breast cancer metastatic
     Dosage: UNK (INJECTION EVERY 3 MONTHS THEN EVERY 2 MONTHS THEN EVERY 1 MONTH IN WINTER)
     Route: 065
     Dates: start: 2011
  4. ZOMETA [Suspect]
     Active Substance: ZOLEDRONIC ACID
     Indication: Bone cancer metastatic

REACTIONS (4)
  - Metastases to bone [Unknown]
  - Diabetes mellitus [Recovering/Resolving]
  - Hypertension [Recovering/Resolving]
  - Asthma [Recovering/Resolving]

NARRATIVE: CASE EVENT DATE: 20221101
